FAERS Safety Report 24418893 (Version 1)
Quarter: 2024Q4

REPORT INFORMATION
  Report Type: Spontaneous
  Country: US (occurrence: US)
  Receive Date: 20241009
  Receipt Date: 20241009
  Transmission Date: 20250114
  Serious: Yes (Other)
  Sender: ELI LILLY AND CO
  Company Number: US-ELI_LILLY_AND_COMPANY-US202410000926

PATIENT
  Age: 36 Year
  Sex: Female

DRUGS (5)
  1. PROZAC [Suspect]
     Active Substance: FLUOXETINE HYDROCHLORIDE
     Indication: Product used for unknown indication
     Dosage: UNK UNK, UNKNOWN
     Route: 065
  2. PROZAC [Suspect]
     Active Substance: FLUOXETINE HYDROCHLORIDE
     Dosage: UNK UNK, UNKNOWN (INCREASED)
     Route: 065
  3. INGREZZA [Suspect]
     Active Substance: VALBENAZINE
     Indication: Tardive dyskinesia
     Dosage: 40 MG, DAILY
     Route: 048
     Dates: start: 202303
  4. QELBREE [Suspect]
     Active Substance: VILOXAZINE HYDROCHLORIDE
     Indication: Product used for unknown indication
     Dosage: UNK UNK, UNKNOWN
     Route: 065
  5. QELBREE [Suspect]
     Active Substance: VILOXAZINE HYDROCHLORIDE
     Dosage: UNK UNK, UNKNOWN (INCREASED)
     Route: 065

REACTIONS (3)
  - Serotonin syndrome [Unknown]
  - Feeling of body temperature change [Unknown]
  - Mania [Unknown]
